FAERS Safety Report 16724160 (Version 1)
Quarter: 2019Q3

REPORT INFORMATION
  Report Type: Spontaneous
  Country: US (occurrence: US)
  Receive Date: 20190821
  Receipt Date: 20190821
  Transmission Date: 20191005
  Serious: No
  Sender: FDA-Public Use
  Company Number: US-IPSEN BIOPHARMACEUTICALS, INC.-2019-14658

PATIENT
  Sex: Male

DRUGS (2)
  1. SOMATULINE [Suspect]
     Active Substance: LANREOTIDE ACETATE
     Indication: OFF LABEL USE
  2. SOMATULINE [Suspect]
     Active Substance: LANREOTIDE ACETATE
     Indication: GANGLIONEUROMA
     Dosage: UNK
     Route: 065

REACTIONS (4)
  - Off label use [Unknown]
  - Anorectal discomfort [Unknown]
  - Diarrhoea [Unknown]
  - Abnormal faeces [Unknown]
